FAERS Safety Report 22541651 (Version 1)
Quarter: 2023Q2

REPORT INFORMATION
  Report Type: Spontaneous
  Country: CN (occurrence: CN)
  Receive Date: 20230609
  Receipt Date: 20230609
  Transmission Date: 20230722
  Serious: Yes (Other)
  Sender: FDA-Public Use
  Company Number: CN-TAKEDA-2023TUS041895

PATIENT
  Sex: Male

DRUGS (1)
  1. ALBUMIN HUMAN [Suspect]
     Active Substance: ALBUMIN HUMAN
     Indication: Fatigue
     Dosage: 10 GRAM, QD
     Route: 065
     Dates: start: 20230422, end: 20230424

REACTIONS (2)
  - Atrial fibrillation [Not Recovered/Not Resolved]
  - Product use in unapproved indication [Unknown]
